FAERS Safety Report 12800975 (Version 1)
Quarter: 2016Q4

REPORT INFORMATION
  Report Type: Spontaneous
  Country: FR (occurrence: FR)
  Receive Date: 20161003
  Receipt Date: 20161003
  Transmission Date: 20170207
  Serious: Yes (Hospitalization)
  Sender: FDA-Public Use
  Company Number: FR-ROCHE-1836333

PATIENT
  Age: 45 Year
  Sex: Male

DRUGS (10)
  1. VANCOMYCINE [Concomitant]
     Active Substance: VANCOMYCIN
     Indication: BACTERIAL SEPSIS
     Route: 042
     Dates: start: 20160909, end: 20160913
  2. ANCOTIL [Suspect]
     Active Substance: FLUCYTOSINE
     Indication: FUNGAL SEPSIS
     Route: 042
     Dates: start: 20160909, end: 20160912
  3. PIPERACILLINE [Concomitant]
     Active Substance: PIPERACILLIN SODIUM
     Indication: BACTERIAL SEPSIS
     Route: 042
     Dates: start: 20160909
  4. METRONIDAZOLE. [Concomitant]
     Active Substance: METRONIDAZOLE
     Indication: BACTERIAL SEPSIS
     Route: 042
     Dates: start: 20160908
  5. CYMEVAN [Suspect]
     Active Substance: GANCICLOVIR
     Indication: INFECTION IN AN IMMUNOCOMPROMISED HOST
     Route: 042
     Dates: start: 20160909
  6. NOREPINEPHRINE [Concomitant]
     Active Substance: NOREPINEPHRINE\NOREPINEPHRINE BITARTRATE
     Indication: HAEMODYNAMIC INSTABILITY
     Route: 042
     Dates: start: 20160908
  7. TAZOBACTAM [Concomitant]
     Active Substance: TAZOBACTAM
     Indication: BACTERIAL SEPSIS
     Route: 042
     Dates: start: 20160909
  8. AMBISOME [Concomitant]
     Active Substance: AMPHOTERICIN B
     Indication: BACTERIAL SEPSIS
     Route: 042
     Dates: start: 20160910
  9. CYMEVAN [Suspect]
     Active Substance: GANCICLOVIR
     Dosage: 1.25 MG/KG
     Route: 042
     Dates: start: 20160912, end: 20160914
  10. BACTRIM [Concomitant]
     Active Substance: SULFAMETHOXAZOLE\TRIMETHOPRIM
     Indication: BACTERIAL SEPSIS
     Route: 042
     Dates: start: 20160909, end: 20160914

REACTIONS (3)
  - Rhabdomyolysis [Recovering/Resolving]
  - Hepatocellular injury [Recovering/Resolving]
  - Pancytopenia [Recovering/Resolving]

NARRATIVE: CASE EVENT DATE: 20160912
